FAERS Safety Report 23530633 (Version 1)
Quarter: 2024Q1

REPORT INFORMATION
  Report Type: Spontaneous
  Country: GB (occurrence: GB)
  Receive Date: 20240216
  Receipt Date: 20240216
  Transmission Date: 20240410
  Serious: Yes (Other)
  Sender: FDA-Public Use
  Company Number: GB-TEVA-2005-CZ-00343

PATIENT
  Age: 32 Year
  Sex: Female

DRUGS (9)
  1. SULPIRIDE [Suspect]
     Active Substance: SULPIRIDE
     Dosage: IVAX 50 MG, G?LULE
     Route: 065
  2. FLUOXETINE [Suspect]
     Active Substance: FLUOXETINE HYDROCHLORIDE
     Indication: Product used for unknown indication
     Dosage: IVAX 20 MG, G?LULE
     Route: 065
  3. PAROXETINE [Suspect]
     Active Substance: PAROXETINE
     Indication: Product used for unknown indication
     Dosage: IVAX 20 MG, COMPRIM? PELLICUL? S?CABLE
     Route: 065
  4. CLOZAPINE [Suspect]
     Active Substance: CLOZAPINE
     Indication: Product used for unknown indication
     Dosage: TABLETS, 12.5MG, 25MG, 50 MG 100MG
     Route: 065
  5. FLUPENTIXOL DECANOATE [Concomitant]
     Active Substance: FLUPENTIXOL DECANOATE
     Route: 065
  6. VENLAFAXINE [Concomitant]
     Active Substance: VENLAFAXINE HYDROCHLORIDE
     Route: 065
  7. RISPERIDONE [Concomitant]
     Active Substance: RISPERIDONE
     Route: 065
  8. ZOPICLONE [Concomitant]
     Active Substance: ZOPICLONE
     Route: 065
  9. CITALOPRAM [Concomitant]
     Active Substance: CITALOPRAM HYDROBROMIDE
     Route: 065

REACTIONS (12)
  - Drug interaction [Recovered/Resolved]
  - Hallucination, auditory [Recovering/Resolving]
  - Salivary hypersecretion [Unknown]
  - Dizziness [Unknown]
  - Orthostatic hypotension [Unknown]
  - Mental impairment [Recovering/Resolving]
  - Generalised tonic-clonic seizure [Recovered/Resolved]
  - Presyncope [Recovered/Resolved]
  - Persecutory delusion [Recovering/Resolving]
  - Depression [Recovering/Resolving]
  - Schizophrenia [Recovering/Resolving]
  - Fatigue [Unknown]
